FAERS Safety Report 12620047 (Version 2)
Quarter: 2016Q3

REPORT INFORMATION
  Report Type: Spontaneous
  Country: US (occurrence: US)
  Receive Date: 20160803
  Receipt Date: 20160829
  Transmission Date: 20161109
  Serious: Yes (Other)
  Sender: FDA-Public Use
  Company Number: US-ENDO PHARMACEUTICALS INC.-2016-001803

PATIENT
  Age: 50 Year
  Sex: Male

DRUGS (1)
  1. TESTOPEL [Suspect]
     Active Substance: TESTOSTERONE
     Indication: PRODUCT USED FOR UNKNOWN INDICATION
     Route: 065
     Dates: start: 201601, end: 2016

REACTIONS (2)
  - Expulsion of medication [Recovered/Resolved]
  - Implant site infection [Recovered/Resolved]

NARRATIVE: CASE EVENT DATE: 2016
